FAERS Safety Report 25085169 (Version 1)
Quarter: 2025Q1

REPORT INFORMATION
  Report Type: Spontaneous
  Country: US (occurrence: None)
  Receive Date: 20250314
  Receipt Date: 20250314
  Transmission Date: 20250408
  Serious: No
  Sender: FDA-CTU
  Company Number: None

PATIENT
  Age: 75 Year
  Sex: Female

DRUGS (2)
  1. DUPIXENT [Suspect]
     Active Substance: DUPILUMAB
  2. DUPIXENT [Concomitant]
     Active Substance: DUPILUMAB
     Dates: start: 20241219

REACTIONS (3)
  - Glycosylated haemoglobin increased [None]
  - Blood cholesterol decreased [None]
  - Blood triglycerides decreased [None]
